FAERS Safety Report 9357702 (Version 1)
Quarter: 2013Q2

REPORT INFORMATION
  Report Type: Spontaneous
  Country: US (occurrence: None)
  Receive Date: 20130619
  Receipt Date: 20130619
  Transmission Date: 20140414
  Serious: Yes (Death)
  Sender: FDA-Public Use
  Company Number: None

PATIENT
  Age: 74 Year
  Sex: Female
  Weight: 69.85 kg

DRUGS (1)
  1. WARFARIN UNKNOWN UNKNOWN [Suspect]

REACTIONS (3)
  - Subdural haematoma [None]
  - Intracranial pressure increased [None]
  - Fall [None]
